FAERS Safety Report 5169372-7 (Version None)
Quarter: 2006Q4

REPORT INFORMATION
  Report Type: 
  Country: None (occurrence: None)
  Receive Date: 20061127
  Receipt Date: 20061121
  Transmission Date: 20070319
  Serious: Yes (Other)
  Sender: FDA-Public Use
  Company Number: GXKR2006NO07529

PATIENT
  Age: 89 Year
  Sex: Female

DRUGS (2)
  1. INDOMETHACIN [Suspect]
     Indication: CHRONIC PAROXYSMAL HEMICRANIA
     Dosage: 25-75 MG
  2. ASPIRIN [Suspect]
     Indication: CHRONIC PAROXYSMAL HEMICRANIA
     Dosage: 6-8 G

REACTIONS (3)
  - DYSPEPSIA [None]
  - GASTRIC ULCER [None]
  - MYOCARDIAL INFARCTION [None]
